FAERS Safety Report 6226982-3 (Version None)
Quarter: 2009Q2

REPORT INFORMATION
  Report Type: 
  Country: None (occurrence: None)
  Receive Date: 20090612
  Receipt Date: 20090522
  Transmission Date: 20091009
  Serious: No
  Sender: FDA-Public Use
  Company Number: US-ABBOTT-09P-163-0575705-00

PATIENT
  Sex: Female
  Weight: 93.978 kg

DRUGS (11)
  1. HUMIRA [Suspect]
     Indication: PSORIATIC ARTHROPATHY
     Route: 058
     Dates: start: 20060101, end: 20090509
  2. HUMIRA [Suspect]
     Indication: OSTEOARTHRITIS
  3. NEXIUM [Concomitant]
     Indication: GASTROOESOPHAGEAL REFLUX DISEASE
  4. ESTRADIOL [Concomitant]
     Indication: HYSTERECTOMY
  5. THIAZIDE [Concomitant]
     Indication: HYPERTENSION
  6. FOLIC ACID [Concomitant]
     Indication: ALOPECIA
     Dosage: 2.5 MG
     Dates: end: 20090509
  7. METHOTREXATE [Concomitant]
     Indication: PSORIATIC ARTHROPATHY
     Dates: end: 20090509
  8. METHOTREXATE [Concomitant]
     Indication: OSTEOARTHRITIS
  9. ULTRAM [Concomitant]
     Indication: PAIN
  10. SYNTHROID [Concomitant]
     Indication: HYPOTHYROIDISM
  11. CALCIUM [Concomitant]
     Indication: BONE DISORDER

REACTIONS (2)
  - ACNE [None]
  - SKIN LACERATION [None]
